FAERS Safety Report 5306169-9 (Version None)
Quarter: 2007Q2

REPORT INFORMATION
  Report Type: 
  Country: None (occurrence: None)
  Receive Date: 20070424
  Receipt Date: 20070420
  Transmission Date: 20071010
  Serious: Yes (Death)
  Sender: FDA-Public Use
  Company Number: NL-SANOFI-SYNTHELABO-F01200700406

PATIENT
  Sex: Male

DRUGS (4)
  1. CETUXIMAB [Suspect]
     Route: 041
     Dates: start: 20060502, end: 20060502
  2. BEVACIZUMAB [Suspect]
     Route: 041
     Dates: start: 20060502, end: 20060502
  3. CAPECITABINE [Suspect]
     Dosage: DAYS 1-14 (1250 MG/M2 AFTER CYCLE 6) 4000 MG
     Route: 048
     Dates: start: 20060502
  4. OXALIPLATIN [Suspect]
     Indication: COLORECTAL CANCER
     Route: 041
     Dates: start: 20060411, end: 20060411

REACTIONS (3)
  - CARDIAC FAILURE [None]
  - DYSPNOEA [None]
  - SEPSIS [None]
